FAERS Safety Report 9420518 (Version 1)
Quarter: 2013Q3

REPORT INFORMATION
  Report Type: Spontaneous
  Country: US (occurrence: US)
  Receive Date: 20130725
  Receipt Date: 20130725
  Transmission Date: 20140515
  Serious: No
  Sender: FDA-Public Use
  Company Number: US-ABBOTT-13P-163-1088400-00

PATIENT
  Age: 59 Year
  Sex: Female

DRUGS (3)
  1. SYNTHROID [Suspect]
     Indication: THYROID DISORDER
     Dates: start: 201104, end: 201212
  2. SYNTHROID [Suspect]
     Dates: start: 201301
  3. SYNTHROID [Suspect]
     Indication: THYROID DISORDER
     Dates: start: 201212, end: 201301

REACTIONS (3)
  - Coeliac disease [Not Recovered/Not Resolved]
  - Feeling abnormal [Recovered/Resolved]
  - Alopecia [Recovered/Resolved]
